FAERS Safety Report 9186351 (Version 4)
Quarter: 2014Q1

REPORT INFORMATION
  Report Type: Spontaneous
  Country: CA (occurrence: CA)
  Receive Date: 20130325
  Receipt Date: 20140225
  Transmission Date: 20141002
  Serious: Yes (Other)
  Sender: FDA-Public Use
  Company Number: CA-ROCHE-1205314

PATIENT
  Sex: Female

DRUGS (7)
  1. XOLAIR [Suspect]
     Indication: ASTHMA
     Route: 058
     Dates: start: 20121001
  2. XOLAIR [Suspect]
     Route: 058
     Dates: start: 20131025
  3. XOLAIR [Suspect]
     Route: 058
     Dates: start: 20131128
  4. ZENHALE [Concomitant]
  5. SPIRIVA [Concomitant]
  6. SINGULAIR [Concomitant]
  7. VENTOLIN [Concomitant]

REACTIONS (3)
  - Lung infection [Recovering/Resolving]
  - Body temperature decreased [Not Recovered/Not Resolved]
  - Aphthous stomatitis [Unknown]
